FAERS Safety Report 23777481 (Version 2)
Quarter: 2025Q1

REPORT INFORMATION
  Report Type: Spontaneous
  Country: AU (occurrence: AU)
  Receive Date: 20240424
  Receipt Date: 20250205
  Transmission Date: 20250408
  Serious: Yes (Hospitalization, Other)
  Sender: ASTELLAS
  Company Number: AU-ASTELLAS-2024US011828

PATIENT
  Age: 68 Year
  Sex: Female

DRUGS (19)
  1. TACROLIMUS [Interacting]
     Active Substance: TACROLIMUS
     Indication: Lung transplant
     Dosage: DAY 0
     Route: 065
  2. TACROLIMUS [Interacting]
     Active Substance: TACROLIMUS
     Dosage: DAY 3
     Route: 065
  3. TACROLIMUS [Interacting]
     Active Substance: TACROLIMUS
     Dosage: DAY 4
     Route: 065
  4. TACROLIMUS [Interacting]
     Active Substance: TACROLIMUS
     Dosage: DAY 5
     Route: 065
  5. TACROLIMUS [Interacting]
     Active Substance: TACROLIMUS
     Dosage: DAY 6
     Route: 065
  6. TACROLIMUS [Interacting]
     Active Substance: TACROLIMUS
     Dosage: DAY 7
     Route: 065
  7. TACROLIMUS [Interacting]
     Active Substance: TACROLIMUS
     Dosage: DAY 8
     Route: 065
  8. TACROLIMUS [Interacting]
     Active Substance: TACROLIMUS
     Dosage: CONTROLLED-RELEASE
     Route: 048
  9. TACROLIMUS [Interacting]
     Active Substance: TACROLIMUS
     Route: 048
  10. PAXLOVID [Interacting]
     Active Substance: NIRMATRELVIR\RITONAVIR
     Indication: COVID-19
     Dosage: NIRMATRELVIR 300 MG AND RITONAVIR 100 MG
     Route: 048
  11. PHENYTOIN [Interacting]
     Active Substance: PHENYTOIN
     Indication: Drug level above therapeutic
     Route: 042
  12. PHENYTOIN [Interacting]
     Active Substance: PHENYTOIN
     Dosage: DAY 2
     Route: 042
  13. PHENYTOIN [Interacting]
     Active Substance: PHENYTOIN
     Dosage: DAY 3
     Route: 042
  14. PHENYTOIN [Interacting]
     Active Substance: PHENYTOIN
     Dosage: DAY 4
     Route: 042
  15. PHENYTOIN [Interacting]
     Active Substance: PHENYTOIN
     Route: 042
  16. PHENYTOIN [Interacting]
     Active Substance: PHENYTOIN
     Route: 048
  17. MYCOPHENOLATE MOFETIL [Concomitant]
     Active Substance: MYCOPHENOLATE MOFETIL
     Indication: Lung transplant
     Route: 048
  18. PREDNISOLONE [Concomitant]
     Active Substance: PREDNISOLONE
     Indication: Lung transplant
     Dosage: PLAN TO WEAN BACK TO 5 MG DAILY OVER 10 DAYS
     Route: 048
  19. PREDNISOLONE [Concomitant]
     Active Substance: PREDNISOLONE
     Route: 048

REACTIONS (5)
  - Toxicity to various agents [Recovered/Resolved]
  - Acute kidney injury [Recovered/Resolved]
  - COVID-19 [Unknown]
  - Drug interaction [Recovered/Resolved]
  - Drug interaction [Recovered/Resolved]
